FAERS Safety Report 6008192-8 (Version None)
Quarter: 2008Q4

REPORT INFORMATION
  Report Type: 
  Country: None (occurrence: None)
  Receive Date: 20081217
  Receipt Date: 20080811
  Transmission Date: 20090506
  Serious: No
  Sender: FDA-Public Use
  Company Number: US-ASTRAZENECA-2008UW15212

PATIENT
  Age: 76 Year
  Sex: Female
  Weight: 59 kg

DRUGS (5)
  1. CRESTOR [Suspect]
     Indication: BLOOD CHOLESTEROL INCREASED
     Dosage: 1/2 OF 5MG TABLET DAILY
     Route: 048
     Dates: start: 20080707, end: 20080721
  2. CRESTOR [Suspect]
     Dosage: 1/2 OF 5MG TABLET EVERY OTHER DAY
     Route: 048
     Dates: start: 20080721
  3. DARVOCET [Concomitant]
     Indication: PAIN
  4. ZIAC [Concomitant]
  5. ATIVAN [Concomitant]
     Indication: NO ADVERSE EVENT

REACTIONS (4)
  - MUSCLE SPASMS [None]
  - MUSCULOSKELETAL PAIN [None]
  - MYALGIA [None]
  - NECK PAIN [None]
